FAERS Safety Report 23290577 (Version 1)
Quarter: 2023Q4

REPORT INFORMATION
  Report Type: Report from Study
  Country: CA (occurrence: CA)
  Receive Date: 20231213
  Receipt Date: 20231213
  Transmission Date: 20240110
  Serious: Yes (Other)
  Sender: FDA-Public Use
  Company Number: CA-CELLTRION INC.-2023CA023353

PATIENT

DRUGS (6)
  1. BEVACIZUMAB [Suspect]
     Active Substance: BEVACIZUMAB
     Indication: Product used for unknown indication
     Dosage: 455 MG, 1 EVERY 2 WEEKS
     Route: 042
  2. OPDIVO [Suspect]
     Active Substance: NIVOLUMAB
     Indication: Mismatch repair cancer syndrome
     Dosage: 240 MG, 1 EVERY 2 WEEKS
     Route: 042
  3. OPDIVO [Suspect]
     Active Substance: NIVOLUMAB
     Indication: Glioblastoma multiforme
     Dosage: UNK
  4. OPDIVO [Suspect]
     Active Substance: NIVOLUMAB
     Indication: Mismatch repair cancer syndrome
     Dosage: 480 MG, 1 EVERY 4 WEEKS
     Route: 042
  5. OPDIVO [Suspect]
     Active Substance: NIVOLUMAB
     Indication: Glioblastoma multiforme
  6. DEXAMETHASONE [Concomitant]
     Active Substance: DEXAMETHASONE
     Indication: Product used for unknown indication
     Route: 065

REACTIONS (6)
  - Hepatitis [Not Recovered/Not Resolved]
  - Laboratory test abnormal [Not Recovered/Not Resolved]
  - Myositis [Not Recovered/Not Resolved]
  - Thyroiditis [Not Recovered/Not Resolved]
  - Blood pressure increased [Not Recovered/Not Resolved]
  - Off label use [Not Recovered/Not Resolved]
